FAERS Safety Report 25963115 (Version 2)
Quarter: 2025Q4

REPORT INFORMATION
  Report Type: Report from Study
  Country: EU (occurrence: None)
  Receive Date: 20251027
  Receipt Date: 20251208
  Transmission Date: 20260118
  Serious: Yes (Hospitalization)
  Sender: UCB
  Company Number: EU-UCBSA-2025066235

PATIENT
  Age: 71 Year
  Weight: 60 kg

DRUGS (1)
  1. BIMEKIZUMAB [Suspect]
     Active Substance: BIMEKIZUMAB
     Indication: Psoriatic arthropathy
     Dosage: 160 MILLIGRAM, MONTHLY (QM)

REACTIONS (3)
  - Osteitis [Recovering/Resolving]
  - Paronychia [Recovering/Resolving]
  - Surgery [Unknown]
